FAERS Safety Report 5939579-7 (Version None)
Quarter: 2008Q4

REPORT INFORMATION
  Report Type: 
  Country: None (occurrence: None)
  Receive Date: 20081030
  Receipt Date: 20081016
  Transmission Date: 20090506
  Serious: Yes (Hospitalization)
  Sender: FDA-Public Use
  Company Number: 2007US001765

PATIENT
  Age: 64 Year
  Sex: Male

DRUGS (16)
  1. PROGRAF [Suspect]
     Indication: LIVER TRANSPLANT REJECTION
     Dosage: 2 MG, BID, ORAL
     Route: 048
     Dates: start: 20070423
  2. MYCOPHENOLATE MOFETIL [Suspect]
     Indication: LIVER TRANSPLANT REJECTION
     Dosage: 500 MG, BID, ORAL
     Route: 048
     Dates: start: 20070510
  3. SULFAMETHOXAZOLE AND TRIMETHOPRIM [Concomitant]
  4. TENOFOVIR DISOPROXIL FUMARATE [Concomitant]
  5. ACYCLOVIR [Concomitant]
  6. CLOTRIMAZOLE [Concomitant]
  7. ESOMEPRAZOLE MAGNESIUM [Concomitant]
  8. URSODIOL [Concomitant]
  9. FLUOXETINE [Concomitant]
  10. ZINC (ZINC OXIDE) [Concomitant]
  11. ASPIRIN [Concomitant]
  12. CALCIUM (ASCORBIC ACID) [Concomitant]
  13. INSULIN (INSULIN HUMAN) [Concomitant]
  14. AMINO ACIDS NOS (AMINO ACIDS NOS) [Concomitant]
  15. MULTIVITAMIN [Concomitant]
  16. MAGNESIUM (MAGNESIUM) [Concomitant]

REACTIONS (3)
  - BILE DUCT STONE [None]
  - BILIARY ANASTOMOSIS COMPLICATION [None]
  - PANCREATOLITHIASIS [None]
